FAERS Safety Report 18895720 (Version 1)
Quarter: 2021Q1

REPORT INFORMATION
  Report Type: Spontaneous
  Country: BR (occurrence: BR)
  Receive Date: 20210215
  Receipt Date: 20210215
  Transmission Date: 20210420
  Serious: Yes (Hospitalization, Other)
  Sender: FDA-Public Use
  Company Number: BR-B.I. PHARMACEUTICALS,INC./RIDGEFIELD-2021-BI-081761

PATIENT
  Age: 73 Year
  Sex: Female

DRUGS (1)
  1. PRADAXA [Suspect]
     Active Substance: DABIGATRAN ETEXILATE MESYLATE
     Indication: INTRACARDIAC THROMBUS

REACTIONS (9)
  - Brain midline shift [Unknown]
  - Subdural haemorrhage [Unknown]
  - Depressed level of consciousness [Unknown]
  - Nausea [Unknown]
  - Fall [Unknown]
  - Mydriasis [Unknown]
  - Headache [Unknown]
  - Seizure [Unknown]
  - Vomiting [Unknown]
